FAERS Safety Report 14612662 (Version 4)
Quarter: 2018Q2

REPORT INFORMATION
  Report Type: Spontaneous
  Country: GB (occurrence: GB)
  Receive Date: 20180308
  Receipt Date: 20180410
  Transmission Date: 20180711
  Serious: Yes (Hospitalization)
  Sender: FDA-Public Use
  Company Number: GB-AUROBINDO-AUR-APL-2018-012193

PATIENT
  Age: 67 Year
  Sex: Female

DRUGS (28)
  1. OMEPRAZOLE. [Suspect]
     Active Substance: OMEPRAZOLE
     Route: 048
  2. SPIRONOLACTONE. [Concomitant]
     Active Substance: SPIRONOLACTONE
     Dosage: ()
  3. IVABRADINE [Concomitant]
     Active Substance: IVABRADINE
     Dosage: 5 MILLIGRAM
     Route: 065
  4. FUROSEMIDE. [Concomitant]
     Active Substance: FUROSEMIDE
     Dosage: 40 MILLIGRAM
     Route: 065
  5. BISOPROLOL [Concomitant]
     Active Substance: BISOPROLOL
     Indication: PRODUCT USED FOR UNKNOWN INDICATION
     Dosage: 2.5 MILLIGRAM
     Route: 065
  6. BISOPROLOL [Concomitant]
     Active Substance: BISOPROLOL
     Dosage: 2.5 MILLIGRAM
     Route: 065
  7. OMEPRAZOLE. [Suspect]
     Active Substance: OMEPRAZOLE
     Route: 048
  8. FUROSEMIDE. [Concomitant]
     Active Substance: FUROSEMIDE
     Indication: BLOOD PRESSURE MEASUREMENT
     Dosage: 40 MILLIGRAM
     Route: 065
  9. OMEPRAZOLE. [Suspect]
     Active Substance: OMEPRAZOLE
     Indication: PRODUCT USED FOR UNKNOWN INDICATION
     Route: 065
  10. IVABRADINE [Concomitant]
     Active Substance: IVABRADINE
     Dosage: 5 MILLIGRAM
     Route: 065
  11. OMEPRAZOLE. [Suspect]
     Active Substance: OMEPRAZOLE
     Route: 048
  12. PROMETHAZINE [Suspect]
     Active Substance: PROMETHAZINE\PROMETHAZINE HYDROCHLORIDE
     Dosage: 20 MILLIGRAM
     Route: 065
     Dates: start: 20180112, end: 20180113
  13. SPIRONOLACTONE. [Concomitant]
     Active Substance: SPIRONOLACTONE
     Indication: PRODUCT USED FOR UNKNOWN INDICATION
     Route: 065
  14. SPIRONOLACTONE. [Concomitant]
     Active Substance: SPIRONOLACTONE
     Dosage: ()
  15. IVABRADINE [Concomitant]
     Active Substance: IVABRADINE
     Indication: CARDIAC DISORDER
     Dosage: 5 MILLIGRAM
     Route: 065
  16. ZIMOVANE [Concomitant]
     Active Substance: ZOPICLONE
     Dosage: 2 DOSAGE FORM
     Route: 065
     Dates: start: 201801
  17. PROMETHAZINE [Suspect]
     Active Substance: PROMETHAZINE\PROMETHAZINE HYDROCHLORIDE
     Indication: PRODUCT USED FOR UNKNOWN INDICATION
     Dosage: UNK
     Route: 065
     Dates: start: 20180112
  18. FUROSEMIDE. [Concomitant]
     Active Substance: FUROSEMIDE
     Dosage: 40 MILLIGRAM
     Route: 065
  19. ZIMOVANE [Concomitant]
     Active Substance: ZOPICLONE
     Dosage: 4 DOSAGE FORM
     Route: 065
  20. PERINDOPRIL [Concomitant]
     Active Substance: PERINDOPRIL
     Dosage: ()
  21. FUROSEMIDE. [Concomitant]
     Active Substance: FUROSEMIDE
     Indication: HYPERTENSION
     Dosage: 40 MILLIGRAM
     Route: 065
  22. BISOPROLOL [Concomitant]
     Active Substance: BISOPROLOL
     Dosage: 2.5 MILLIGRAM
     Route: 065
  23. ZIMOVANE [Concomitant]
     Active Substance: ZOPICLONE
     Indication: SEDATIVE THERAPY
     Route: 065
  24. ZIMOVANE [Concomitant]
     Active Substance: ZOPICLONE
     Dosage: 4 DOSAGE FORM
     Route: 065
  25. PERINDOPRIL [Concomitant]
     Active Substance: PERINDOPRIL
     Indication: PRODUCT USED FOR UNKNOWN INDICATION
     Route: 065
  26. PROMETHAZINE [Suspect]
     Active Substance: PROMETHAZINE\PROMETHAZINE HYDROCHLORIDE
     Dosage: ()
     Route: 065
     Dates: start: 20180112
  27. OMEPRAZOLE. [Suspect]
     Active Substance: OMEPRAZOLE
     Route: 048
  28. PERINDOPRIL [Concomitant]
     Active Substance: PERINDOPRIL
     Dosage: ()

REACTIONS (33)
  - Syncope [Unknown]
  - Nightmare [Recovered/Resolved]
  - Loss of control of legs [Unknown]
  - Malaise [Unknown]
  - Dysuria [Recovered/Resolved]
  - Dizziness [Recovered/Resolved]
  - Syncope [Recovered/Resolved]
  - Hypoaesthesia [Unknown]
  - Psychiatric symptom [Recovering/Resolving]
  - Tremor [Unknown]
  - Disorientation [Unknown]
  - Vision blurred [Recovered/Resolved]
  - Hot flush [Recovered/Resolved]
  - Mental disorder [Recovering/Resolving]
  - Photosensitivity reaction [Unknown]
  - Dry mouth [Recovered/Resolved]
  - Hot flush [Unknown]
  - Unevaluable event [Recovered/Resolved]
  - Disorientation [Unknown]
  - Photosensitivity reaction [Recovered/Resolved]
  - Eye disorder [Recovering/Resolving]
  - Fear [Recovering/Resolving]
  - Suicidal ideation [Unknown]
  - Cardiac disorder [Unknown]
  - Confusional state [Recovered/Resolved]
  - Tremor [Unknown]
  - Memory impairment [Recovering/Resolving]
  - Heart rate increased [Unknown]
  - Decreased appetite [Recovered/Resolved]
  - Dysuria [Unknown]
  - Restlessness [Recovered/Resolved]
  - Palpitations [Recovering/Resolving]
  - Disturbance in attention [Recovering/Resolving]

NARRATIVE: CASE EVENT DATE: 2018
